FAERS Safety Report 6402185-4 (Version None)
Quarter: 2009Q4

REPORT INFORMATION
  Report Type: 
  Country: None (occurrence: None)
  Receive Date: 20091015
  Receipt Date: 20091006
  Transmission Date: 20100525
  Serious: Yes (Hospitalization)
  Sender: FDA-Public Use
  Company Number: CH-ASTRAZENECA-2009SE18645

PATIENT
  Age: 78 Year
  Sex: Female
  Weight: 57 kg

DRUGS (14)
  1. NEXIUM [Interacting]
     Route: 048
     Dates: start: 20090601
  2. PHENHYDAN [Interacting]
     Indication: TRIGEMINAL NEURALGIA
     Route: 048
     Dates: start: 20090501
  3. PHENHYDAN [Interacting]
     Dosage: DOSE REDUCED.
     Route: 048
  4. NORVASC [Suspect]
     Indication: ESSENTIAL HYPERTENSION
     Route: 048
  5. OXYCONTIN [Suspect]
     Indication: TRIGEMINAL NEURALGIA
     Route: 048
     Dates: start: 20090801
  6. OXYNORM [Suspect]
     Indication: TRIGEMINAL NEURALGIA
     Route: 048
     Dates: start: 20090801
  7. ZOLPIDEM [Suspect]
     Indication: TRIGEMINAL NEURALGIA
     Route: 048
  8. NEURONTIN [Suspect]
     Indication: TRIGEMINAL NEURALGIA
     Route: 048
  9. RIVOTRIL [Suspect]
     Indication: TRIGEMINAL NEURALGIA
     Route: 048
     Dates: end: 20090909
  10. TEGRETOL [Suspect]
     Indication: TRIGEMINAL NEURALGIA
     Route: 048
  11. TENORMIN [Concomitant]
     Indication: ESSENTIAL HYPERTENSION
     Route: 048
  12. ACETAMINOPHEN [Concomitant]
     Indication: TRIGEMINAL NEURALGIA
     Route: 048
  13. NEURODOL [Concomitant]
     Indication: TRIGEMINAL NEURALGIA
     Route: 062
  14. DEXAMETHASONE 0.5MG TAB [Concomitant]
     Indication: TRIGEMINAL NEURALGIA
     Route: 048
     Dates: start: 20090601

REACTIONS (2)
  - BALANCE DISORDER [None]
  - SOMNOLENCE [None]
